FAERS Safety Report 5345343-2 (Version None)
Quarter: 2007Q2

REPORT INFORMATION
  Report Type: 
  Country: None (occurrence: None)
  Receive Date: 20070601
  Receipt Date: 20070523
  Transmission Date: 20071010
  Serious: Yes (Hospitalization, Disabling)
  Sender: FDA-Public Use
  Company Number: 2007S1000078

PATIENT
  Age: 62 Year
  Sex: Male

DRUGS (12)
  1. ACITRETIN [Suspect]
     Indication: PSORIASIS
     Dosage: ; QD; PO
     Route: 048
     Dates: start: 20050313, end: 20060911
  2. MORPHINE [Suspect]
     Indication: PAIN
  3. E45 WASH [Concomitant]
  4. PARAFFIN, LIQUID [Concomitant]
  5. CAPASAL [Concomitant]
  6. BECLOMETHASONE DIPROPIONATE [Concomitant]
  7. SALBUTAMOL [Concomitant]
  8. OLANZAPINE [Concomitant]
  9. MIRTAZAPINE [Concomitant]
  10. COAL TAR [Concomitant]
  11. AMITRIPTYLINE HCL [Concomitant]
  12. CELECOXIB [Concomitant]

REACTIONS (14)
  - CALCINOSIS [None]
  - CONSTIPATION [None]
  - DEHYDRATION [None]
  - DIARRHOEA [None]
  - DRUG INEFFECTIVE [None]
  - EATING DISORDER [None]
  - ENTHESOPATHY [None]
  - GASTROINTESTINAL DISORDER [None]
  - IMPAIRED HEALING [None]
  - INSOMNIA [None]
  - MOBILITY DECREASED [None]
  - MYOSITIS [None]
  - SKIN ULCER [None]
  - TENDONITIS [None]
